FAERS Safety Report 5128088-3 (Version None)
Quarter: 2006Q4

REPORT INFORMATION
  Report Type: 
  Country: None (occurrence: None)
  Receive Date: 20061003
  Receipt Date: 20060920
  Transmission Date: 20070319
  Serious: Yes (Other)
  Sender: FDA-Public Use
  Company Number: 2005BH002397

PATIENT
  Age: 2 Year
  Sex: Male

DRUGS (3)
  1. IMMUNE GLOBULIN (HUMAN) [Suspect]
     Indication: HUMAN HERPESVIRUS 6 INFECTION
     Dosage: 1000 MG/KG; UNK; IV
     Route: 042
  2. PHENYTOIN [Concomitant]
  3. MIDAZOLAM [Concomitant]

REACTIONS (13)
  - AMINO ACID LEVEL INCREASED [None]
  - ASTHENIA [None]
  - DEPRESSED LEVEL OF CONSCIOUSNESS [None]
  - ENCEPHALOPATHY [None]
  - INJURY [None]
  - LEUKOCYTOSIS [None]
  - NERVOUS SYSTEM DISORDER [None]
  - NUCLEAR MAGNETIC RESONANCE IMAGING BRAIN ABNORMAL [None]
  - OEDEMA [None]
  - PLEOCYTOSIS [None]
  - PYREXIA [None]
  - SOMNOLENCE [None]
  - TONIC CONVULSION [None]
